FAERS Safety Report 5644542-X (Version None)
Quarter: 2008Q1

REPORT INFORMATION
  Report Type: 
  Country: None (occurrence: None)
  Receive Date: 20080229
  Receipt Date: 20070223
  Transmission Date: 20080703
  Serious: No
  Sender: FDA-Public Use
  Company Number: A0640774A

PATIENT
  Sex: Female

DRUGS (2)
  1. VALTREX [Suspect]
     Dosage: 500MG AS REQUIRED
     Route: 048
  2. ZELNORM [Concomitant]

REACTIONS (1)
  - DRUG ADMINISTRATION ERROR [None]
